FAERS Safety Report 4634756-X (Version None)
Quarter: 2005Q2

REPORT INFORMATION
  Report Type: 
  Country: None (occurrence: None)
  Receive Date: 20050413
  Receipt Date: 20050328
  Transmission Date: 20051028
  Serious: Yes (Other)
  Sender: FDA-Public Use
  Company Number: A-US2005-09154

PATIENT
  Age: 72 Year
  Sex: Female
  Weight: 43.1 kg

DRUGS (2)
  1. TRACLEER [Suspect]
     Indication: PULMONARY HYPERTENSION
     Dosage: 62.5 MG, B ID, ORAL; 125 MG, BID, ORAL
     Route: 048
     Dates: start: 20041104, end: 20041204
  2. TRACLEER [Suspect]
     Indication: PULMONARY HYPERTENSION
     Dosage: 62.5 MG, B ID, ORAL; 125 MG, BID, ORAL
     Route: 048
     Dates: start: 20041205, end: 20041229

REACTIONS (3)
  - ALANINE AMINOTRANSFERASE INCREASED [None]
  - ASPARTATE AMINOTRANSFERASE INCREASED [None]
  - BLOOD BILIRUBIN INCREASED [None]
